FAERS Safety Report 16933601 (Version 3)
Quarter: 2020Q4

REPORT INFORMATION
  Report Type: Spontaneous
  Country: MY (occurrence: MY)
  Receive Date: 20191018
  Receipt Date: 20201223
  Transmission Date: 20210113
  Serious: Yes (Hospitalization, Other)
  Sender: FDA-Public Use
  Company Number: MY-AMGEN-MYSSP2019172576

PATIENT
  Age: 49 Year
  Sex: Female

DRUGS (1)
  1. PASURTA [Suspect]
     Active Substance: ERENUMAB
     Indication: MIGRAINE
     Dosage: 70 MILLIGRAM, QD
     Route: 058
     Dates: start: 20190828

REACTIONS (3)
  - Migraine [Recovering/Resolving]
  - Insomnia [Recovering/Resolving]
  - Affect lability [Unknown]

NARRATIVE: CASE EVENT DATE: 20191013
